FAERS Safety Report 7072524-2 (Version None)
Quarter: 2010Q4

REPORT INFORMATION
  Report Type: 
  Country: None (occurrence: None)
  Receive Date: 20101029
  Receipt Date: 20100205
  Transmission Date: 20110411
  Serious: No
  Sender: FDA-Public Use
  Company Number: A0843252A

PATIENT
  Age: 86 Year
  Sex: Female

DRUGS (4)
  1. ADVAIR DISKUS 100/50 [Suspect]
     Indication: CHRONIC OBSTRUCTIVE PULMONARY DISEASE
     Dosage: 1PUFF TWICE PER DAY
     Route: 055
     Dates: start: 20090601
  2. VITAMINS [Concomitant]
  3. ALBUTEROL [Concomitant]
  4. MECLIZINE [Concomitant]

REACTIONS (8)
  - DYSPHONIA [None]
  - GLOSSODYNIA [None]
  - HEADACHE [None]
  - INFLUENZA [None]
  - MYALGIA [None]
  - ORAL PAIN [None]
  - STOMATITIS [None]
  - TONGUE DISORDER [None]
